FAERS Safety Report 8648896 (Version 2)
Quarter: 2012Q4

REPORT INFORMATION
  Report Type: Report from Study
  Country: PL (occurrence: PL)
  Receive Date: 20120704
  Receipt Date: 20120928
  Transmission Date: 20130627
  Serious: Yes (Death, Life-Threatening, Hospitalization)
  Sender: FDA-Public Use
  Company Number: PL-ELI_LILLY_AND_COMPANY-PL201207000617

PATIENT
  Age: 61 Year
  Sex: Female
  Weight: 59 kg

DRUGS (3)
  1. PEMETREXED [Suspect]
     Indication: LUNG ADENOCARCINOMA
     Dosage: UNK, 1 in 3 wk
     Route: 042
     Dates: start: 20120302, end: 20120323
  2. CISPLATIN [Suspect]
     Indication: LUNG ADENOCARCINOMA
     Dosage: UNK, 1 in 3 wk
     Route: 042
     Dates: start: 20120302, end: 20120323
  3. UNSPECIFIED INGREDIENT [Suspect]
     Indication: LUNG ADENOCARCINOMA
     Dosage: Double-Blind, Day 1+8 of C1 then Day 1 of each cycle
     Route: 042
     Dates: start: 20120302, end: 20120323

REACTIONS (4)
  - Diarrhoea [Fatal]
  - Febrile neutropenia [Unknown]
  - Dehydration [None]
  - Blood pressure decreased [None]
